FAERS Safety Report 4509176-9 (Version None)
Quarter: 2004Q4

REPORT INFORMATION
  Report Type: 
  Country: None (occurrence: None)
  Receive Date: 20041025
  Receipt Date: 20040806
  Transmission Date: 20050328
  Serious: Yes (Hospitalization)
  Sender: FDA-Public Use
  Company Number: US-JNJFOC-20040802172

PATIENT
  Age: 65 Year
  Sex: Female

DRUGS (10)
  1. INFLIXIMAB (INFLIXIMAB, RECOMBINANT) LYOPHILIZED POWDER [Suspect]
     Indication: RHEUMATOID ARTHRITIS
     Dosage: 1 IN 1 DAY INTRAVENOUS
     Route: 042
     Dates: start: 20001201, end: 20010901
  2. SYNTHROID [Concomitant]
  3. PLAQUENIL [Concomitant]
  4. PREDNISONE [Concomitant]
  5. PLAVIX [Concomitant]
  6. LOPRESSOR [Concomitant]
  7. DIOVAN [Concomitant]
  8. MEVACOR [Concomitant]
  9. ASPIRIN [Concomitant]
  10. PERCOCET [Concomitant]

REACTIONS (1)
  - PNEUMONIA [None]
